FAERS Safety Report 8851058 (Version 2)
Quarter: 2013Q2

REPORT INFORMATION
  Report Type: Report from Study
  Country: JP (occurrence: JP)
  Receive Date: 20121019
  Receipt Date: 20130402
  Transmission Date: 20140414
  Serious: Yes (Other)
  Sender: FDA-Public Use
  Company Number: JP-009507513-1210JPN004922

PATIENT
  Age: 65 Year
  Sex: Female
  Weight: 48 kg

DRUGS (23)
  1. PEGINTRON [Suspect]
     Indication: CHRONIC HEPATITIS C
     Dosage: 80 MICROGRAM PER KILOGRAM, QW
     Route: 058
     Dates: start: 20120615, end: 20120706
  2. PEGINTRON [Suspect]
     Dosage: 40 MICROGRAM PER KILOGRAM, QW
     Route: 058
     Dates: start: 20120713, end: 20121202
  3. REBETOL [Suspect]
     Indication: CHRONIC HEPATITIS C
     Dosage: 400 MG, QD
     Route: 048
     Dates: start: 20120615, end: 20120705
  4. REBETOL [Suspect]
     Dosage: 200 MG, QD
     Route: 048
     Dates: start: 20120706
  5. REBETOL [Suspect]
     Dosage: 400 MG, QD
     Route: 048
     Dates: end: 20120619
  6. REBETOL [Suspect]
     Dosage: 200 MG, QD
     Route: 048
     Dates: start: 20120619, end: 20120831
  7. REBETOL [Suspect]
     Dosage: 400 MG, QD
     Route: 048
     Dates: start: 20120831, end: 20120914
  8. REBETOL [Suspect]
     Dosage: 600 UNK, UNK
     Route: 048
     Dates: start: 20120914, end: 20121005
  9. REBETOL [Suspect]
     Dosage: 400 UNK, UNK
     Route: 048
     Dates: start: 20121005, end: 20121206
  10. TELAVIC [Suspect]
     Indication: CHRONIC HEPATITIS C
     Dosage: 1500 MG, QD
     Route: 048
     Dates: start: 20120615, end: 20120726
  11. TELAVIC [Suspect]
     Dosage: 1000MG, QD
     Route: 048
     Dates: start: 20120726, end: 20120813
  12. RILMAZAFONE HYDROCHLORIDE [Concomitant]
     Indication: PROPHYLAXIS
     Dosage: 1 MG, PER DAY AS NEEDED
     Route: 048
     Dates: start: 20120618, end: 20120810
  13. RILMAZAFONE HYDROCHLORIDE [Concomitant]
     Dosage: 10 MG, QD
     Route: 048
     Dates: end: 20120113
  14. PRIMPERAN [Concomitant]
     Dosage: 15 MG, QD
     Route: 048
     Dates: start: 20120713, end: 20120727
  15. RIKKUNSHI-TO [Concomitant]
     Dosage: 7.5 G, QD
     Route: 048
     Dates: start: 20120720, end: 20121130
  16. FERROMIA [Concomitant]
     Indication: PROPHYLAXIS
     Dosage: 100 MG, QD
     Route: 048
     Dates: start: 20120720
  17. FERROMIA [Concomitant]
     Dosage: 5 G, QD
     Route: 048
  18. FERROMIA [Concomitant]
     Dosage: 100 MG, QD
     Route: 048
     Dates: end: 20121016
  19. [THERAPY UNSPECIFIED] [Concomitant]
     Dosage: 25 G, PER DAY AS NEEDED
     Route: 061
     Dates: start: 20120726, end: 20120810
  20. TALION OD [Concomitant]
     Dosage: 20 MG, QD
     Route: 048
     Dates: start: 20120726
  21. MYSER (DIFLUPREDNATE) [Concomitant]
     Dosage: 25 G, QD
     Route: 061
     Dates: start: 20120726, end: 20120810
  22. ZYLORIC [Concomitant]
     Dosage: 200 MG, QD
     Route: 048
     Dates: start: 20120726, end: 20120810
  23. CELESTAMINE COMBINATION [Concomitant]
     Dosage: 3 DF, QD
     Route: 048
     Dates: start: 20120726, end: 20120824

REACTIONS (1)
  - Erythema multiforme [Recovered/Resolved]
